FAERS Safety Report 7480031-8 (Version None)
Quarter: 2011Q2

REPORT INFORMATION
  Report Type: 
  Country: None (occurrence: None)
  Receive Date: 20110516
  Receipt Date: 20110506
  Transmission Date: 20111010
  Serious: No
  Sender: FDA-Public Use
  Company Number: US-BIOGENIDEC-2010BI041494

PATIENT
  Age: 52 Year
  Sex: Male

DRUGS (1)
  1. TYSABRI [Suspect]
     Indication: MULTIPLE SCLEROSIS
     Route: 042
     Dates: start: 20101105

REACTIONS (6)
  - BALANCE DISORDER [None]
  - FATIGUE [None]
  - DIZZINESS [None]
  - FEELING ABNORMAL [None]
  - STRESS [None]
  - MALAISE [None]
